FAERS Safety Report 10697738 (Version 1)
Quarter: 2015Q1

REPORT INFORMATION
  Report Type: Spontaneous
  Country: US (occurrence: None)
  Receive Date: 20150107
  Receipt Date: 20150107
  Transmission Date: 20150721
  Serious: No
  Sender: FDA-Public Use
  Company Number: None

PATIENT
  Age: 68 Year
  Sex: Male
  Weight: 63.5 kg

DRUGS (2)
  1. EXJADE [Suspect]
     Active Substance: DEFERASIROX
     Indication: IRON OVERLOAD
     Dosage: 5 TABS QD ORAL
     Route: 048
  2. ENTECAVIR. [Concomitant]
     Active Substance: ENTECAVIR

REACTIONS (1)
  - VIIth nerve paralysis [None]

NARRATIVE: CASE EVENT DATE: 20141230
